FAERS Safety Report 12964779 (Version 3)
Quarter: 2017Q1

REPORT INFORMATION
  Report Type: Spontaneous
  Country: US (occurrence: US)
  Receive Date: 20161122
  Receipt Date: 20170105
  Transmission Date: 20170428
  Serious: Yes (Other)
  Sender: FDA-Public Use
  Company Number: US-PFIZER INC-2016540236

PATIENT
  Age: 55 Year
  Sex: Male
  Weight: 91 kg

DRUGS (18)
  1. LYRICA [Suspect]
     Active Substance: PREGABALIN
     Indication: PAIN
     Dosage: 50 MG, UNK
  2. ZESTRIL [Concomitant]
     Active Substance: LISINOPRIL
     Dosage: 2.5 MG, 1X/DAY
     Route: 048
     Dates: start: 20160711
  3. FLORANEX [Concomitant]
     Active Substance: LACTOBACILLUS ACIDOPHILUS\LACTOBACILLUS DELBRUECKII SUBSP. BULGARICUS
     Dosage: 1 DF, 1X/DAY (1 MILLION CELL TABLET)
     Route: 048
  4. LYRICA [Suspect]
     Active Substance: PREGABALIN
     Indication: DIABETIC NEUROPATHY
     Dosage: 500 MG, DAILY (100 MG STRENGTH, 2 CAPSULE IN MORNING, 2 CAPSULE AT NOON AND ONE CAPSULE AT NIGHT)
     Dates: start: 20161123
  5. LYRICA [Suspect]
     Active Substance: PREGABALIN
     Indication: NEURALGIA
  6. HYDROCODONE [Concomitant]
     Active Substance: HYDROCODONE
     Indication: PAIN
     Dosage: 10/325MG TABLET FOUR TIMES A DAY, AS NEEDED
  7. CARBIDOPA-LEVODOPA-B [Concomitant]
     Active Substance: CARBIDOPA\LEVODOPA
     Indication: PARKINSON^S DISEASE
     Dosage: [CARBIDOPA 25MG]/[LEVODOPA 100MG] TABLET FOUR TO FIVE TIMES A DAY, AS NEEDED
  8. HYDROCODONE/ACETAMINOPHEN [Concomitant]
     Active Substance: ACETAMINOPHEN\HYDROCODONE
     Indication: PAIN
     Dosage: 1 DF, AS NEEDED (HYDROCODONE:10 MG;ACETAMINOPHEN:325 MG; EVERY FOUR HOURS)
     Route: 048
     Dates: start: 20161027
  9. LEVITRA [Concomitant]
     Active Substance: VARDENAFIL HYDROCHLORIDE TRIHYDRATE
     Dosage: 10 MG, AS NEEDED (ONCE A DAY)
     Route: 048
     Dates: start: 20161123
  10. LYRICA [Suspect]
     Active Substance: PREGABALIN
     Indication: CHRONIC INFLAMMATORY DEMYELINATING POLYRADICULONEUROPATHY
  11. VALIUM [Concomitant]
     Active Substance: DIAZEPAM
     Indication: MUSCLE SPASMS
     Dosage: 10 MG, 3X/DAY
  12. ASPIRIN (E.C.) [Concomitant]
     Active Substance: ASPIRIN
     Dosage: 81 MG, UNK
  13. CARBIDOPA W/ENTACAPONE/LEVODOPA [Concomitant]
     Active Substance: CARBIDOPA\ENTACAPONE\LEVODOPA
     Dosage: 1 DF, 4X/DAY (CARBIDOPA: 31.25MG; LEVODOPA: 125MG; ENTACAPONE: 200 MG)
     Route: 048
  14. VITAMIN B12 [Concomitant]
     Active Substance: CYANOCOBALAMIN
     Dosage: 1 ML, MONTHLY
     Route: 058
     Dates: start: 20151214
  15. VALIUM [Concomitant]
     Active Substance: DIAZEPAM
     Dosage: 10 MG, AS NEEDED (THREE TIMES A DAY/TWICE A DAY)
     Route: 048
     Dates: start: 20161123
  16. LYRICA [Suspect]
     Active Substance: PREGABALIN
     Indication: NEUROPATHY PERIPHERAL
     Dosage: 100 MG, 3X/DAY
     Route: 048
  17. VALIUM [Concomitant]
     Active Substance: DIAZEPAM
     Dosage: 10 MG, 2X/DAY
  18. ZETIA [Concomitant]
     Active Substance: EZETIMIBE
     Dosage: 10 MG, 1X/DAY (AT BEDTIME)
     Route: 048
     Dates: start: 20160711

REACTIONS (6)
  - Suicidal ideation [Unknown]
  - Prescribed overdose [Unknown]
  - Parkinson^s disease [Not Recovered/Not Resolved]
  - Abdominal discomfort [Unknown]
  - Weight increased [Unknown]
  - Intentional product misuse [Unknown]

NARRATIVE: CASE EVENT DATE: 2014
